FAERS Safety Report 15067164 (Version 8)
Quarter: 2019Q2

REPORT INFORMATION
  Report Type: Report from Study
  Country: CA (occurrence: CA)
  Receive Date: 20180626
  Receipt Date: 20190422
  Transmission Date: 20190711
  Serious: Yes (Hospitalization, Other)
  Sender: FDA-Public Use
  Company Number: PHHY2012CA036590

PATIENT
  Age: 84 Year
  Sex: Male

DRUGS (6)
  1. ALLERJECT [Concomitant]
     Active Substance: EPINEPHRINE
     Indication: PRODUCT USED FOR UNKNOWN INDICATION
     Dosage: 0.3 MG, ONCE/SINGLE
     Route: 030
  2. REACTINE (CETIRIZINE HYDROCHLORIDE) [Concomitant]
     Active Substance: CETIRIZINE HYDROCHLORIDE
     Indication: PRODUCT USED FOR UNKNOWN INDICATION
     Dosage: 10 MG, PRN
     Route: 048
  3. SANDOSTATIN LAR DEPOT [Suspect]
     Active Substance: OCTREOTIDE ACETATE
     Indication: PANCREATIC NEUROENDOCRINE TUMOUR
     Dosage: 20 MG, QMO (ONCE A MONTH)
     Route: 030
     Dates: start: 20120429, end: 20160201
  4. SANDOSTATIN [Suspect]
     Active Substance: OCTREOTIDE ACETATE
     Indication: PANCREATIC NEUROENDOCRINE TUMOUR
     Dosage: TID (TO STOP 2 WEEKS AFTER FIRST LAR)
     Route: 058
     Dates: end: 201205
  5. SANDOSTATIN LAR DEPOT [Suspect]
     Active Substance: OCTREOTIDE ACETATE
     Dosage: 30 MG, QMO (ONCE A MONTH)
     Route: 030
     Dates: start: 20160301
  6. BENADRYL [Concomitant]
     Active Substance: DIPHENHYDRAMINE HYDROCHLORIDE
     Indication: PRODUCT USED FOR UNKNOWN INDICATION
     Dosage: 25 MG (1-2 CO), Q6H
     Route: 048

REACTIONS (41)
  - Arthralgia [Unknown]
  - Tremor [Unknown]
  - Decreased appetite [Unknown]
  - Gastritis [Recovering/Resolving]
  - Urinary retention [Unknown]
  - Spinal osteoarthritis [Unknown]
  - Wound [Unknown]
  - Confusional state [Unknown]
  - Pollakiuria [Unknown]
  - Syncope [Unknown]
  - Pain [Unknown]
  - Hypoaesthesia [Unknown]
  - Swelling face [Unknown]
  - Pain in extremity [Unknown]
  - Dizziness [Unknown]
  - Diabetes mellitus [Unknown]
  - Blood glucose increased [Unknown]
  - Blood pressure increased [Recovering/Resolving]
  - Body temperature decreased [Unknown]
  - Food allergy [Unknown]
  - Iodine allergy [Unknown]
  - Insomnia [Recovered/Resolved]
  - Urinary tract infection [Unknown]
  - Asthenia [Unknown]
  - Weight decreased [Unknown]
  - Anxiety [Unknown]
  - Eating disorder symptom [Recovering/Resolving]
  - Faeces pale [Unknown]
  - Abnormal faeces [Unknown]
  - Restless legs syndrome [Unknown]
  - Nausea [Unknown]
  - Urine abnormality [Unknown]
  - Hypophagia [Unknown]
  - Cataract [Unknown]
  - Arthritis [Unknown]
  - Fall [Unknown]
  - Anal incontinence [Unknown]
  - Eye swelling [Unknown]
  - Osteoarthritis [Unknown]
  - Vertigo [Unknown]
  - Blood glucose decreased [Unknown]

NARRATIVE: CASE EVENT DATE: 20160126
